FAERS Safety Report 25033053 (Version 1)
Quarter: 2025Q1

REPORT INFORMATION
  Report Type: Spontaneous
  Country: DK (occurrence: DK)
  Receive Date: 20250303
  Receipt Date: 20250303
  Transmission Date: 20250408
  Serious: Yes (Other)
  Sender: MYLAN
  Company Number: None

PATIENT
  Age: 25 Year
  Sex: Male
  Weight: 75 kg

DRUGS (2)
  1. SERTRALINE [Suspect]
     Active Substance: SERTRALINE HYDROCHLORIDE
     Indication: Muscle tightness
     Dosage: 50 MILLIGRAM, QD (STRENGTH: 50 MG.INITIAL DAILY DOSAGE: 50 MG.)
     Dates: start: 20210211, end: 20210519
  2. SERTRALINE [Suspect]
     Active Substance: SERTRALINE HYDROCHLORIDE
     Dosage: 100 MILLIGRAM, QD (STRENGTH: 50 MG.DAILY DOSE: 100 MG (UNKNOWN IF DIVIDED IN SEVERAL DOSES).)
     Dates: start: 20210520, end: 202110

REACTIONS (7)
  - Poisoning [Recovered/Resolved]
  - Alcohol interaction [Recovered/Resolved]
  - Abnormal behaviour [Recovered/Resolved]
  - Sexual abuse [Recovered/Resolved]
  - Feeling abnormal [Recovered/Resolved]
  - Amnesia [Recovered/Resolved]
  - Thinking abnormal [Recovered/Resolved]

NARRATIVE: CASE EVENT DATE: 20210101
